FAERS Safety Report 7691823-4 (Version None)
Quarter: 2011Q3

REPORT INFORMATION
  Report Type: 
  Country: None (occurrence: None)
  Receive Date: 20110818
  Receipt Date: 20110817
  Transmission Date: 20111222
  Serious: Yes (Other)
  Sender: FDA-Public Use
  Company Number: AR-PFIZER INC-2011121952

PATIENT
  Age: 58 Year
  Sex: Female

DRUGS (3)
  1. OLANZAPINE [Concomitant]
     Dosage: UNK
     Route: 048
  2. PRISTIQ [Suspect]
     Indication: DEPRESSION
     Dosage: 50 MG, 1X/DAY
     Route: 048
     Dates: start: 20110501, end: 20110601
  3. LORAZEPAM [Concomitant]
     Dosage: UNK
     Route: 048

REACTIONS (1)
  - FACE OEDEMA [None]
